FAERS Safety Report 9808914 (Version 1)
Quarter: 2014Q1

REPORT INFORMATION
  Report Type: Spontaneous
  Country: US (occurrence: US)
  Receive Date: 20140110
  Receipt Date: 20140110
  Transmission Date: 20141002
  Serious: Yes (Death)
  Sender: FDA-Public Use
  Company Number: US-PFIZER INC-2014004917

PATIENT
  Age: 33 Year
  Sex: Male

DRUGS (7)
  1. OXYCODONE HYDROCHLORIDE [Suspect]
     Dosage: UNK
     Route: 048
  2. ALPRAZOLAM [Suspect]
     Dosage: UNK
     Route: 048
  3. TRAZODONE [Suspect]
     Dosage: UNK
     Route: 048
  4. COCAINE [Suspect]
     Dosage: UNK
     Route: 048
  5. CLONAZEPAM [Suspect]
     Dosage: UNK
     Route: 048
  6. TRAMADOL [Suspect]
     Dosage: UNK
     Route: 048
  7. DOXYLAMINE [Suspect]
     Dosage: UNK
     Route: 048

REACTIONS (1)
  - Drug abuse [Fatal]
